FAERS Safety Report 21860617 (Version 1)
Quarter: 2023Q1

REPORT INFORMATION
  Report Type: Spontaneous
  Country: US (occurrence: None)
  Receive Date: 20230113
  Receipt Date: 20230113
  Transmission Date: 20230417
  Serious: Yes (Hospitalization)
  Sender: FDA-Public Use
  Company Number: None

PATIENT
  Sex: Male
  Weight: 70.1 kg

DRUGS (29)
  1. EPCLUSA [Suspect]
     Active Substance: SOFOSBUVIR\VELPATASVIR
     Indication: Hepatitis C
     Dosage: 400-100MG TABLET ONCE DAILY BY MOUTH?
     Route: 048
     Dates: start: 20171020, end: 20180112
  2. CYCLOSPORINE [Concomitant]
     Active Substance: CYCLOSPORINE
  3. MYFORTIC [Concomitant]
     Active Substance: MYCOPHENOLATE SODIUM
  4. SEPTRA [Concomitant]
     Active Substance: SULFAMETHOXAZOLE\TRIMETHOPRIM
  5. VALGANCICLOVIR [Concomitant]
     Active Substance: VALGANCICLOVIR
  6. TINZAPRIN [Concomitant]
  7. HYDRALAZINE [Concomitant]
     Active Substance: HYDRALAZINE HYDROCHLORIDE
  8. ALENDRONATE [Concomitant]
     Active Substance: ALENDRONATE SODIUM
  9. FERROUS GLUCONATE [Concomitant]
     Active Substance: FERROUS GLUCONATE
  10. MAGNESIUM OXIDE [Concomitant]
     Active Substance: MAGNESIUM OXIDE
  11. HYDROMORPHONE CR [Concomitant]
  12. POLYETHYLENE GLYCOL [Concomitant]
     Active Substance: POLYETHYLENE GLYCOL
  13. PREDNISONE [Concomitant]
     Active Substance: PREDNISONE
  14. AMLODIPINE [Concomitant]
     Active Substance: AMLODIPINE BESYLATE
  15. ATORVASTATIN [Concomitant]
     Active Substance: ATORVASTATIN
  16. SENNA [Concomitant]
     Active Substance: SENNA LEAF\SENNOSIDES\SENNOSIDES A AND B
  17. VITAMIN D [Concomitant]
     Active Substance: VITAMIN D NOS
  18. ATENOLOL [Concomitant]
     Active Substance: ATENOLOL
  19. BUDESONIDE [Concomitant]
     Active Substance: BUDESONIDE
  20. MOMETASONE [Concomitant]
     Active Substance: MOMETASONE
  21. VITAMINS [Concomitant]
     Active Substance: VITAMINS
  22. HYDROCORTISONE [Concomitant]
     Active Substance: HYDROCORTISONE
  23. FUSIDIC ACID [Concomitant]
     Active Substance: FUSIDIC ACID
  24. CLOXACILLIN [Concomitant]
     Active Substance: CLOXACILLIN
  25. LOPERAMIDE [Concomitant]
     Active Substance: LOPERAMIDE
  26. GABAPENTIN [Concomitant]
     Active Substance: GABAPENTIN
  27. HUMULIN NOS [Concomitant]
     Active Substance: INSULIN HUMAN
  28. ACETAMINOPHEN [Concomitant]
     Active Substance: ACETAMINOPHEN
  29. HEPARIN [Concomitant]
     Active Substance: HEPARIN SODIUM

REACTIONS (1)
  - Pneumothorax [None]

NARRATIVE: CASE EVENT DATE: 20171024
